FAERS Safety Report 8373163 (Version 2)
Quarter: 2013Q1

REPORT INFORMATION
  Report Type: Report from Study
  Country: None (occurrence: US)
  Receive Date: 20120128
  Receipt Date: 20130129
  Transmission Date: 20140127
  Serious: Yes (Hospitalization)
  Sender: FDA-Public Use
  Company Number: US-ABBOTT-11P-163-0844061-00

PATIENT
  Sex: Female

DRUGS (3)
  1. HUMIRA 40 MG/0.8 ML PEN [Suspect]
     Indication: CROHN^S DISEASE
     Dates: start: 201105
  2. REMICADE [Concomitant]
     Indication: PRODUCT USED FOR UNKNOWN INDICATION
     Dates: end: 201105
  3. REMICADE [Concomitant]
     Dates: start: 20110801

REACTIONS (8)
  - Abdominal pain [Unknown]
  - Vomiting [Unknown]
  - Malaise [Unknown]
  - Secretion discharge [Unknown]
  - Abdominal pain [Unknown]
  - Asthenia [Unknown]
  - Pyrexia [Unknown]
  - Crohn^s disease [Unknown]
